FAERS Safety Report 9178738 (Version 2)
Quarter: 2013Q2

REPORT INFORMATION
  Report Type: Spontaneous
  Country: FR (occurrence: FR)
  Receive Date: 20130321
  Receipt Date: 20130429
  Transmission Date: 20140414
  Serious: Yes (Hospitalization, Other)
  Sender: FDA-Public Use
  Company Number: FR-BRISTOL-MYERS SQUIBB COMPANY-17472721

PATIENT
  Age: 57 Year
  Sex: Male
  Weight: 72 kg

DRUGS (1)
  1. YERVOY [Suspect]
     Indication: METASTATIC MALIGNANT MELANOMA
     Dosage: 3RD INF:01FEB2013,4TH INF;22-FEB-2013
     Route: 042
     Dates: start: 20121221

REACTIONS (3)
  - Diabetes insipidus [Not Recovered/Not Resolved]
  - Hypothyroidism [Not Recovered/Not Resolved]
  - Headache [Not Recovered/Not Resolved]
